FAERS Safety Report 9531537 (Version 1)
Quarter: 2013Q3

REPORT INFORMATION
  Report Type: Spontaneous
  Country: US (occurrence: US)
  Receive Date: 20130918
  Receipt Date: 20130918
  Transmission Date: 20140515
  Serious: Yes (Other)
  Sender: FDA-Public Use
  Company Number: US-PFIZER INC-2013265675

PATIENT
  Age: 61 Year
  Sex: Female
  Weight: 68.03 kg

DRUGS (10)
  1. PREMARIN [Suspect]
     Indication: HORMONE REPLACEMENT THERAPY
     Dosage: UNK
     Route: 048
     Dates: start: 2000
  2. PROZAC [Suspect]
     Indication: DEPRESSION
     Dosage: 60 MG, 1X/DAY (40MG IN THE MORNING AND 20MG AT NIGHT)
  3. PROZAC [Suspect]
     Indication: ANXIETY
  4. PROZAC [Suspect]
     Indication: HEADACHE
  5. PRAVACHOL [Concomitant]
     Indication: BLOOD CHOLESTEROL INCREASED
     Dosage: 40 MG, 1X/DAY
  6. XANAX [Concomitant]
     Indication: ANXIETY
     Dosage: 1 MG, 3X/DAY
  7. WELLBUTRIN [Concomitant]
     Indication: ANXIETY
     Dosage: 150 MG, 2X/DAY
  8. PRIMIDONE [Concomitant]
     Indication: TREMOR
     Dosage: 125 MG, 2X/DAY
  9. TRAZODONE [Concomitant]
     Dosage: 50 MG, 1X/DAY
  10. ATENOLOL [Concomitant]
     Indication: MITRAL VALVE PROLAPSE
     Dosage: 50 MG, 1X/DAY

REACTIONS (1)
  - Mental disorder [Unknown]
